FAERS Safety Report 5166882-3 (Version None)
Quarter: 2006Q4

REPORT INFORMATION
  Report Type: 
  Country: None (occurrence: None)
  Receive Date: 20061129
  Receipt Date: 20061118
  Transmission Date: 20070319
  Serious: Yes (Hospitalization, Other)
  Sender: FDA-Public Use
  Company Number: 2006143467

PATIENT
  Age: 80 Year
  Sex: Male

DRUGS (1)
  1. AMLODIPINE [Suspect]
     Indication: HYPERTENSION
     Dosage: 5 MG (5 MG, FREQUENCY: DAILY), ORAL
     Route: 048

REACTIONS (4)
  - CEREBRAL ISCHAEMIA [None]
  - CONDITION AGGRAVATED [None]
  - HEMIPLEGIA [None]
  - HYPERTENSION [None]
